FAERS Safety Report 5429990-5 (Version None)
Quarter: 2007Q3

REPORT INFORMATION
  Report Type: 
  Country: None (occurrence: None)
  Receive Date: 20070829
  Receipt Date: 20070827
  Transmission Date: 20080115
  Serious: Yes (Hospitalization, Other)
  Sender: FDA-Public Use
  Company Number: GR-BOEHRINGER INGELHEIM PHARMACEUTICALS, INC.-2007-DE-05076GB

PATIENT
  Age: 40 Year
  Sex: Female
  Weight: 65 kg

DRUGS (4)
  1. MOVATEC [Suspect]
     Indication: BACK PAIN
     Route: 048
  2. MOVATEC [Suspect]
     Indication: ARTHRALGIA
  3. HOMEOPATHIC PRODUCT [Concomitant]
     Indication: BACK PAIN
  4. HOMEOPATHIC PRODUCT [Concomitant]
     Indication: ARTHRALGIA

REACTIONS (2)
  - GASTROINTESTINAL HAEMORRHAGE [None]
  - NEOPLASM MALIGNANT [None]
